FAERS Safety Report 12901617 (Version 1)
Quarter: 2016Q4

REPORT INFORMATION
  Report Type: Report from Study
  Country: KE (occurrence: KE)
  Receive Date: 20161102
  Receipt Date: 20161102
  Transmission Date: 20170207
  Serious: Yes (Other)
  Sender: FDA-Public Use
  Company Number: KE-CIPLA LTD.-2016KE20216

PATIENT

DRUGS (5)
  1. LAMIVUDINE/ZIDOVUDINE [Suspect]
     Active Substance: LAMIVUDINE\ZIDOVUDINE
     Dosage: UNK, FROM 34 GESTATIONAL WEEKS
     Route: 064
  2. NEVIRAPINE. [Suspect]
     Active Substance: NEVIRAPINE
     Dosage: 2 MG/KG, SINGLE, WITHIN 72 HOURS OF BIRTH
     Route: 065
  3. LAMIVUDINE/ZIDOVUDINE [Suspect]
     Active Substance: LAMIVUDINE\ZIDOVUDINE
     Dosage: UNK, UPTO 6 MONTHS POST PARTUM
     Route: 063
  4. NEVIRAPINE. [Suspect]
     Active Substance: NEVIRAPINE
     Indication: PROPHYLAXIS AGAINST HIV INFECTION
     Dosage: UNK, FROM 34 GESTATIONAL WEEKS
     Route: 064
  5. NEVIRAPINE. [Suspect]
     Active Substance: NEVIRAPINE
     Dosage: UNK, UP TO 6 MONTHS POST PARTUM
     Route: 063

REACTIONS (3)
  - Foetal exposure during pregnancy [Unknown]
  - HIV infection [Unknown]
  - Exposure during breast feeding [Unknown]
